FAERS Safety Report 4985031-5 (Version None)
Quarter: 2006Q2

REPORT INFORMATION
  Report Type: 
  Country: None (occurrence: None)
  Receive Date: 20060421
  Receipt Date: 20060407
  Transmission Date: 20061013
  Serious: Yes (Other)
  Sender: FDA-Public Use
  Company Number: 2006RR-01944

PATIENT
  Age: 37 Year
  Sex: Male

DRUGS (2)
  1. TILIDIN COMP. BASICS (TILIDINE HYDROCHLORIDE 50MG/0.72 ML, NALOXONE HY [Suspect]
     Indication: OPIATES
     Dosage: 800 UG, SINGLE, INTRAMUSCULAR
     Route: 030
  2. COCAINE (COCAINE) [Suspect]
     Indication: INTENTIONAL DRUG MISUSE

REACTIONS (3)
  - DRUG INTERACTION [None]
  - RESPIRATORY DEPRESSION [None]
  - VENTRICULAR TACHYCARDIA [None]
